FAERS Safety Report 14741832 (Version 1)
Quarter: 2018Q2

REPORT INFORMATION
  Report Type: Spontaneous
  Country: CA (occurrence: CA)
  Receive Date: 20180410
  Receipt Date: 20180410
  Transmission Date: 20180711
  Serious: Yes (Other)
  Sender: FDA-Public Use
  Company Number: CA-CORDEN PHARMA LATINA S.P.A.-CA-2018COR000023

PATIENT

DRUGS (3)
  1. PROCARBAZINE [Suspect]
     Active Substance: PROCARBAZINE
     Indication: GLIOMA
     Dosage: 100 MG/M2, FROM DAY 8 TO 22
     Route: 048
  2. VINCRISTINE [Suspect]
     Active Substance: VINCRISTINE
     Indication: GLIOMA
     Dosage: 1.4 MG/M2 (MAXIMUM OF 2 MG) ON DAYS 8 AND 29
  3. LOMUSTINE. [Suspect]
     Active Substance: LOMUSTINE
     Indication: GLIOMA
     Dosage: 110 MG/M2 ON DAY 1 OF CYCLE

REACTIONS (1)
  - Febrile neutropenia [Unknown]
